FAERS Safety Report 5042298-5 (Version None)
Quarter: 2006Q2

REPORT INFORMATION
  Report Type: 
  Country: None (occurrence: None)
  Receive Date: 20060627
  Receipt Date: 20060612
  Transmission Date: 20061013
  Serious: Yes (Other)
  Sender: FDA-Public Use
  Company Number: TRP_0793_2006

PATIENT
  Age: 51 Year
  Sex: Female

DRUGS (4)
  1. RIBASPHERE [Suspect]
     Indication: HEPATITIS C
     Dosage: DF UNK PO
     Route: 048
     Dates: start: 20050224
  2. PEG-INTRON [Suspect]
     Indication: HEPATITIS C
     Dosage: DF UNK SC
     Route: 058
     Dates: start: 20060224
  3. PROZAC [Concomitant]
  4. VICODIN [Concomitant]

REACTIONS (6)
  - ARTHRALGIA [None]
  - FATIGUE [None]
  - FOOD CRAVING [None]
  - HUNGER [None]
  - INFECTIOUS MONONUCLEOSIS [None]
  - PNEUMONIA [None]
